FAERS Safety Report 17903364 (Version 2)
Quarter: 2020Q3

REPORT INFORMATION
  Report Type: Spontaneous
  Country: US (occurrence: US)
  Receive Date: 20200616
  Receipt Date: 20200722
  Transmission Date: 20201103
  Serious: Yes (Other)
  Sender: FDA-Public Use
  Company Number: NVSC2020US167006

PATIENT
  Sex: Male

DRUGS (1)
  1. ETANERCEPT [Suspect]
     Active Substance: ETANERCEPT
     Indication: COMBINED IMMUNODEFICIENCY
     Dosage: UNK
     Route: 065

REACTIONS (5)
  - Otitis media [Unknown]
  - Pneumonia [Unknown]
  - Therapeutic response decreased [Unknown]
  - Cellulitis [Unknown]
  - Product use in unapproved indication [Unknown]
